FAERS Safety Report 6475924-4 (Version None)
Quarter: 2009Q4

REPORT INFORMATION
  Report Type: 
  Country: None (occurrence: None)
  Receive Date: 20091204
  Receipt Date: 20091126
  Transmission Date: 20100525
  Serious: Yes (Hospitalization)
  Sender: FDA-Public Use
  Company Number: PHHY2009KW52410

PATIENT
  Age: 48 Year
  Sex: Female

DRUGS (4)
  1. SIMULECT [Suspect]
     Indication: RENAL TRANSPLANT
  2. MYCOPHENOLATE MOFETIL [Suspect]
     Indication: RENAL TRANSPLANT
  3. TACROLIMUS [Concomitant]
     Indication: RENAL TRANSPLANT
  4. STEROIDS [Concomitant]
     Indication: RENAL TRANSPLANT

REACTIONS (5)
  - ACUTE RESPIRATORY DISTRESS SYNDROME [None]
  - DIALYSIS [None]
  - MECHANICAL VENTILATION [None]
  - POLYURIA [None]
  - PULMONARY OEDEMA [None]
